FAERS Safety Report 6922786-4 (Version None)
Quarter: 2010Q3

REPORT INFORMATION
  Report Type: 
  Country: None (occurrence: None)
  Receive Date: 20100813
  Receipt Date: 20100813
  Transmission Date: 20110219
  Serious: Yes (Hospitalization)
  Sender: FDA-Public Use
  Company Number: None

PATIENT
  Age: 63 Year
  Sex: Female

DRUGS (1)
  1. SODIUM POLYSTYRENE SULFONATE [Suspect]
     Indication: HYPERKALAEMIA
     Dosage: 120G -30 + 30 + 60
     Dates: start: 20060112, end: 20060113

REACTIONS (2)
  - INTESTINAL ISCHAEMIA [None]
  - LARGE INTESTINAL ULCER [None]
